FAERS Safety Report 24262224 (Version 1)
Quarter: 2024Q3

REPORT INFORMATION
  Report Type: Spontaneous
  Country: US (occurrence: US)
  Receive Date: 20240829
  Receipt Date: 20240829
  Transmission Date: 20241017
  Serious: Yes (Hospitalization, Other)
  Sender: RANBAXY
  Company Number: US-SUN PHARMACEUTICAL INDUSTRIES LTD-2024R1-464928

PATIENT
  Age: 50 Year
  Sex: Male

DRUGS (1)
  1. MORPHINE [Suspect]
     Active Substance: MORPHINE
     Indication: Product used for unknown indication
     Dosage: UNK
     Route: 065

REACTIONS (6)
  - Altered state of consciousness [Unknown]
  - Unresponsive to stimuli [Unknown]
  - Lung opacity [Unknown]
  - Overdose [Unknown]
  - Pneumonia aspiration [Unknown]
  - Wound abscess [Unknown]
